FAERS Safety Report 21141854 (Version 1)
Quarter: 2022Q3

REPORT INFORMATION
  Report Type: Spontaneous
  Country: US (occurrence: None)
  Receive Date: 20220727
  Receipt Date: 20220727
  Transmission Date: 20221027
  Serious: Yes (Other)
  Sender: FDA-Public Use
  Company Number: None

PATIENT
  Sex: Female
  Weight: 67.05 kg

DRUGS (10)
  1. DULOXETINE [Suspect]
     Active Substance: DULOXETINE
     Indication: Depression
     Dosage: OTHER QUANTITY : 1 CAPSULE(S);?FREQUENCY : DAILY;?
  2. SIMVASTATIN [Concomitant]
     Active Substance: SIMVASTATIN
  3. TOPIRAMATE [Concomitant]
     Active Substance: TOPIRAMATE
  4. MONTELUKAST [Concomitant]
     Active Substance: MONTELUKAST SODIUM
  5. ENALAPRIL [Concomitant]
     Active Substance: ENALAPRIL
  6. CETIRIZINE HYDROCHLORIDE [Concomitant]
     Active Substance: CETIRIZINE HYDROCHLORIDE
  7. NITROGLYCERIN [Concomitant]
     Active Substance: NITROGLYCERIN
  8. ESTRADIOL [Concomitant]
     Active Substance: ESTRADIOL
  9. ACETAMINOPHEN [Suspect]
     Active Substance: ACETAMINOPHEN
  10. benifir [Concomitant]

REACTIONS (1)
  - Weight increased [None]
